FAERS Safety Report 7014475-5 (Version None)
Quarter: 2010Q3

REPORT INFORMATION
  Report Type: 
  Country: None (occurrence: None)
  Receive Date: 20100927
  Receipt Date: 20100914
  Transmission Date: 20110219
  Serious: Yes (Hospitalization, Other)
  Sender: FDA-Public Use
  Company Number: US-ELI_LILLY_AND_COMPANY-US201008004793

PATIENT
  Sex: Female

DRUGS (8)
  1. FORTEO [Suspect]
     Indication: OSTEOPOROSIS
     Dosage: 20 UG, DAILY (1/D)
  2. SALSALATE [Concomitant]
     Dosage: 750 D/F, 2/D
  3. PREDNISONE [Concomitant]
     Dosage: 4 MG, UNK
  4. CALCIUM [Concomitant]
     Dosage: 600 MG, 2/D
  5. ASPIRIN [Concomitant]
     Dosage: 35 MG, UNK
  6. MULTI-VITAMINS [Concomitant]
  7. PRILOSEC [Concomitant]
  8. VITAMIN D [Concomitant]
     Dosage: 100000 UNITS, ONCE EVERY TWO WEEKS

REACTIONS (9)
  - AMNESIA [None]
  - APHASIA [None]
  - ARTHRITIS [None]
  - BONE DISORDER [None]
  - CEREBROVASCULAR ACCIDENT [None]
  - COMPRESSION FRACTURE [None]
  - DEMENTIA [None]
  - IRON DEFICIENCY [None]
  - VITAMIN D DEFICIENCY [None]
